FAERS Safety Report 7991082-9 (Version None)
Quarter: 2011Q4

REPORT INFORMATION
  Report Type: 
  Country: None (occurrence: None)
  Receive Date: 20111219
  Receipt Date: 20111213
  Transmission Date: 20120403
  Serious: Yes (Other)
  Sender: FDA-Public Use
  Company Number: US-ROCHE-794556

PATIENT
  Sex: Male
  Weight: 97.61 kg

DRUGS (2)
  1. ACCUTANE [Suspect]
     Indication: PSORIASIS
     Route: 065
     Dates: start: 19820101, end: 19840101
  2. ACETAMINOPHEN [Concomitant]
     Indication: HEADACHE

REACTIONS (4)
  - COLITIS ULCERATIVE [None]
  - COLON CANCER [None]
  - DEPRESSION [None]
  - INFLAMMATORY BOWEL DISEASE [None]
